FAERS Safety Report 6774008-5 (Version None)
Quarter: 2010Q2

REPORT INFORMATION
  Report Type: 
  Country: None (occurrence: None)
  Receive Date: 20100615
  Receipt Date: 20100615
  Transmission Date: 20101027
  Serious: Yes (Other)
  Sender: FDA-Public Use
  Company Number: None

PATIENT
  Age: 57 Year
  Sex: Male
  Weight: 86.1834 kg

DRUGS (1)
  1. CIPROFLOXACIN HCL [Suspect]
     Indication: URINARY TRACT INFECTION
     Dosage: 500MG TWICE A DAY PO
     Route: 048
     Dates: start: 20100521, end: 20100531

REACTIONS (2)
  - GAIT DISTURBANCE [None]
  - TENDON PAIN [None]
